FAERS Safety Report 20804645 (Version 2)
Quarter: 2022Q2

REPORT INFORMATION
  Report Type: Spontaneous
  Country: FR (occurrence: FR)
  Receive Date: 20220509
  Receipt Date: 20220531
  Transmission Date: 20220721
  Serious: Yes (Life-Threatening, Hospitalization, Other)
  Sender: FDA-Public Use
  Company Number: None

PATIENT
  Age: 47 Year
  Sex: Female
  Weight: 71 kg

DRUGS (5)
  1. COMIRNATY [Suspect]
     Active Substance: TOZINAMERAN
     Indication: COVID-19 immunisation
     Dosage: DOSE 2, SINGLE
     Route: 030
     Dates: start: 20210828, end: 20210828
  2. ALPRAZOLAM [Suspect]
     Active Substance: ALPRAZOLAM
     Indication: Product used for unknown indication
     Dosage: AS NEEDED
     Route: 048
     Dates: start: 202107, end: 20210903
  3. MYTELASE [Concomitant]
     Active Substance: AMBENONIUM CHLORIDE
     Dosage: 10 MG, 2X/DAY (MORNING AND EVENING)
     Route: 048
  4. MESTINON [Concomitant]
     Active Substance: PYRIDOSTIGMINE BROMIDE
     Dosage: 180 MG, 2X/DAY (MORNING AND EVENING)
     Route: 048
  5. FORMOTEROL [Concomitant]
     Active Substance: FORMOTEROL
     Dosage: 12 UG 1 PUFF MORNING AND EVENING

REACTIONS (7)
  - Condition aggravated [Recovering/Resolving]
  - Myasthenia gravis [Recovering/Resolving]
  - Hypertension [Unknown]
  - Dysphagia [Unknown]
  - Dyspnoea [Unknown]
  - Fatigue [Unknown]
  - Dysphagia [Unknown]

NARRATIVE: CASE EVENT DATE: 20210830
